FAERS Safety Report 9905856 (Version 2)
Quarter: 2014Q1

REPORT INFORMATION
  Report Type: Spontaneous
  Country: US (occurrence: US)
  Receive Date: 20140218
  Receipt Date: 20140218
  Transmission Date: 20141002
  Serious: No
  Sender: FDA-Public Use
  Company Number: US-GILEAD-2012-0050319

PATIENT
  Sex: Female
  Weight: 40.36 kg

DRUGS (12)
  1. LETAIRIS [Suspect]
     Indication: PULMONARY HYPERTENSION
     Dosage: 5 MG, UNK
     Route: 048
     Dates: start: 20111130
  2. LETAIRIS [Suspect]
     Indication: HEART DISEASE CONGENITAL
  3. LETAIRIS [Suspect]
     Indication: FALLOT^S TETRALOGY
  4. LETAIRIS [Suspect]
     Indication: PULMONARY ARTERY ATRESIA
  5. TYVASO [Concomitant]
  6. REVATIO [Concomitant]
  7. LEVOTHYROXINE SODIUM [Concomitant]
  8. ZOLPIDEM TARTRATE [Concomitant]
  9. AMIODARONE [Concomitant]
  10. LOSARTAN POTASSIUM [Concomitant]
  11. COUMADIN                           /00014802/ [Concomitant]
  12. OXYGEN [Concomitant]

REACTIONS (6)
  - Abdominal distension [Unknown]
  - Cough [Unknown]
  - Chest discomfort [Unknown]
  - Throat irritation [Unknown]
  - Headache [Unknown]
  - Swelling [Unknown]
